FAERS Safety Report 8720653 (Version 2)
Quarter: 2012Q4

REPORT INFORMATION
  Report Type: 
  Country: VE (occurrence: VE)
  Receive Date: 20120813
  Receipt Date: 20121031
  Transmission Date: 20130627
  Serious: Yes (Other)
  Sender: FDA-Public Use
  Company Number: VE-ELI_LILLY_AND_COMPANY-VE201208002483

PATIENT

DRUGS (8)
  1. HUMALOG 25% LISPRO, 75% NPL [Suspect]
     Dosage: 10 u, bid
     Route: 064
     Dates: start: 20120601, end: 20120723
  2. HUMALOG 25% LISPRO, 75% NPL [Suspect]
     Dosage: 10 u, bid
     Route: 064
     Dates: start: 20120601, end: 20120723
  3. ALDOMET [Concomitant]
     Route: 064
  4. ALDOMET [Concomitant]
     Route: 064
  5. GLUCOPHAGE [Concomitant]
     Route: 064
  6. GLUCOPHAGE [Concomitant]
     Route: 064
  7. VITAMINS [Concomitant]
  8. VITAMINS [Concomitant]

REACTIONS (2)
  - Premature baby [Recovered/Resolved]
  - Foetal exposure during pregnancy [Recovered/Resolved]
